FAERS Safety Report 10692299 (Version 4)
Quarter: 2015Q3

REPORT INFORMATION
  Report Type: Spontaneous
  Country: US (occurrence: US)
  Receive Date: 20150106
  Receipt Date: 20150814
  Transmission Date: 20151125
  Serious: No
  Sender: FDA-Public Use
  Company Number: US-BIOGENIDEC-2015BI000131

PATIENT
  Age: 61 Year
  Sex: Female

DRUGS (2)
  1. ATIVAN [Concomitant]
     Active Substance: LORAZEPAM
  2. TECFIDERA [Suspect]
     Active Substance: DIMETHYL FUMARATE
     Indication: RELAPSING-REMITTING MULTIPLE SCLEROSIS
     Route: 048
     Dates: start: 2014

REACTIONS (6)
  - Urticaria [Not Recovered/Not Resolved]
  - Rash [Recovered/Resolved]
  - Gastric disorder [Unknown]
  - Hypersensitivity [Recovered/Resolved]
  - Gait disturbance [Not Recovered/Not Resolved]
  - Balance disorder [Not Recovered/Not Resolved]

NARRATIVE: CASE EVENT DATE: 20141224
